FAERS Safety Report 5383147-5 (Version None)
Quarter: 2007Q3

REPORT INFORMATION
  Report Type: 
  Country: None (occurrence: None)
  Receive Date: 20070710
  Receipt Date: 20070702
  Transmission Date: 20080115
  Serious: Yes (Hospitalization, Other)
  Sender: FDA-Public Use
  Company Number: US-ELI_LILLY_AND_COMPANY-US200705000424

PATIENT
  Age: 49 Year
  Sex: Female
  Weight: 71.201 kg

DRUGS (28)
  1. BYETTA [Suspect]
     Indication: TYPE 2 DIABETES MELLITUS
     Dosage: 5 UG, DAILY (1/D)
     Dates: start: 20070331, end: 20070413
  2. BYETTA [Suspect]
     Dosage: 5 UG, 2/D
     Route: 058
     Dates: start: 20051101, end: 20051201
  3. BYETTA [Suspect]
     Dosage: 10 UG, 2/D
     Route: 058
     Dates: start: 20051201, end: 20060101
  4. BYETTA [Suspect]
     Dosage: 5 UG, 2/D
     Route: 058
     Dates: start: 20060101, end: 20060601
  5. BYETTA [Suspect]
     Dosage: 5 UG, 2/D
     Route: 058
     Dates: start: 20060601, end: 20070301
  6. PLAQUENIL [Concomitant]
     Indication: RHEUMATOID ARTHRITIS
     Dosage: 200 MG, 2/D
     Route: 048
     Dates: start: 19900101
  7. METFORMIN [Concomitant]
     Indication: TYPE 2 DIABETES MELLITUS
     Dosage: 500 MG, DAILY (1/D)
     Route: 048
     Dates: start: 20051101, end: 20060101
  8. METFORMIN [Concomitant]
     Dosage: 1000 MG, DAILY (1/D)
     Route: 048
     Dates: start: 20070401
  9. NEUROTON [Concomitant]
     Indication: MULTIPLE SCLEROSIS
     Dosage: 325 MG, 3/D
     Route: 048
     Dates: start: 19950101
  10. NEUROTON [Concomitant]
     Dosage: 650 MG, DAILY (1/D)
     Route: 048
     Dates: start: 19950101
  11. ALBUTEROL [Concomitant]
     Indication: ASTHMA
     Dosage: UNK, DAILY (1/D)
     Route: 055
     Dates: start: 19900101
  12. ASMACORT [Concomitant]
     Indication: ASTHMA
     Dosage: 1 UNK, DAILY (1/D)
     Route: 055
     Dates: start: 19900101
  13. NEXIUM [Concomitant]
     Dosage: 40 MG, DAILY (1/D)
     Route: 048
  14. FLEXERIL [Concomitant]
     Dosage: 10 MG, 3/D
     Route: 048
  15. PLAVIX [Concomitant]
     Dosage: 75 MG, DAILY (1/D)
     Route: 048
  16. ZYRTEC [Concomitant]
     Dosage: 10 MG, AS NEEDED
     Route: 048
  17. LIPITOR [Concomitant]
     Dosage: 20 MG, DAILY (1/D)
     Route: 048
  18. EFFEXOR [Concomitant]
     Dosage: 75 MG, 2/D
     Route: 048
  19. TRAZODONE HCL [Concomitant]
     Dosage: 50 MG, OTHER
     Route: 048
  20. QUININE SULFATE [Concomitant]
     Dosage: 325 MG, AS NEEDED
     Route: 048
  21. LISINOPRIL [Concomitant]
     Dosage: 10 MG, DAILY (1/D)
     Route: 048
  22. FLONASE [Concomitant]
     Dosage: UNK, DAILY (1/D)
     Route: 045
  23. GEMFIBROZIL [Concomitant]
     Dosage: 600 MG, UNKNOWN
     Route: 065
  24. MS CONTIN [Concomitant]
     Dosage: 60 MG, 2/D
  25. METHOCARBAMOL [Concomitant]
     Dosage: 40 MG, QOD
  26. OXYGEN [Concomitant]
  27. SUDAFED 12 HOUR [Concomitant]
     Dosage: 60 MG, UNKNOWN
     Route: 065
  28. ADVAIR DISKUS 100/50 [Concomitant]

REACTIONS (12)
  - ACUTE RESPIRATORY DISTRESS SYNDROME [None]
  - BLOOD GLUCOSE DECREASED [None]
  - COMA [None]
  - FALL [None]
  - GRAND MAL CONVULSION [None]
  - HAEMATOMA [None]
  - PARTIAL SEIZURES [None]
  - PNEUMONIA [None]
  - RHEUMATOID ARTHRITIS [None]
  - VOMITING [None]
  - WEIGHT DECREASED [None]
  - WEIGHT INCREASED [None]
